FAERS Safety Report 13348990 (Version 1)
Quarter: 2017Q1

REPORT INFORMATION
  Report Type: Other
  Country: DE (occurrence: DE)
  Receive Date: 20170320
  Receipt Date: 20170320
  Transmission Date: 20170428
  Serious: Yes (Hospitalization, Other)
  Sender: FDA-Public Use
  Company Number: DE-SHIRE-DE201705802

PATIENT
  Age: 25 Year
  Sex: Female
  Weight: 54 kg

DRUGS (2)
  1. REVESTIVE [Suspect]
     Active Substance: TEDUGLUTIDE
     Indication: SHORT-BOWEL SYNDROME
     Dosage: 0.26 ML, OTHER EVERY 2 DAYS
     Route: 058
     Dates: start: 20141015
  2. METOPROLOL. [Concomitant]
     Active Substance: METOPROLOL
     Indication: PRODUCT USED FOR UNKNOWN INDICATION
     Dosage: 11.75 MG, 1X/DAY:QD
     Route: 048
     Dates: start: 20150101

REACTIONS (2)
  - Product use issue [Unknown]
  - Device related infection [Unknown]

NARRATIVE: CASE EVENT DATE: 20170302
